FAERS Safety Report 9405560 (Version 1)
Quarter: 2013Q3

REPORT INFORMATION
  Report Type: Spontaneous
  Country: US (occurrence: US)
  Receive Date: 20130717
  Receipt Date: 20130717
  Transmission Date: 20140515
  Serious: Yes (Other)
  Sender: FDA-Public Use
  Company Number: US-ROXANE LABORATORIES, INC.-2013-RO-01167RO

PATIENT
  Age: 66 Year
  Sex: Male

DRUGS (5)
  1. PREDNISONE [Suspect]
     Indication: BONE PAIN
     Dosage: 5 MG
  2. PREDNISONE [Suspect]
     Indication: MYELOFIBROSIS
     Dosage: 40 MG
  3. FLUCONAZOLE [Suspect]
     Indication: PNEUMONIA
     Dosage: 800 MG
     Route: 048
  4. FLUCONAZOLE [Suspect]
     Dosage: 400 MG
     Route: 048
  5. RUXOLITINIB [Suspect]
     Indication: SPLENOMEGALY

REACTIONS (2)
  - Pneumonia cryptococcal [Recovered/Resolved]
  - Thrombocytopenia [Unknown]
